FAERS Safety Report 5104448-1 (Version None)
Quarter: 2006Q3

REPORT INFORMATION
  Report Type: 
  Country: None (occurrence: None)
  Receive Date: 20060914
  Receipt Date: 20060901
  Transmission Date: 20061208
  Serious: Yes (Hospitalization)
  Sender: FDA-Public Use
  Company Number: DE-BRISTOL-MYERS SQUIBB COMPANY-13497078

PATIENT
  Age: 27 Year
  Sex: Male

DRUGS (2)
  1. ABILIFY [Suspect]
     Indication: SCHIZOPHRENIA, RESIDUAL TYPE
     Dates: start: 20040907
  2. TRUXAL [Concomitant]
     Dates: start: 20040816

REACTIONS (2)
  - AGITATION [None]
  - RESTLESSNESS [None]
